FAERS Safety Report 25933195 (Version 2)
Quarter: 2025Q4

REPORT INFORMATION
  Report Type: Spontaneous
  Country: EU (occurrence: EU)
  Receive Date: 20251017
  Receipt Date: 20251126
  Transmission Date: 20260117
  Serious: Yes (Hospitalization, Other)
  Sender: CELLTRION
  Company Number: None

PATIENT

DRUGS (6)
  1. RITUXIMAB [Suspect]
     Active Substance: RITUXIMAB
     Indication: Anti-neutrophil cytoplasmic antibody positive vasculitis
     Dosage: 1 GRAM EVERY 1 CYCLE
     Route: 042
     Dates: start: 20250723
  2. RITUXIMAB [Suspect]
     Active Substance: RITUXIMAB
     Dosage: 1 GRAM EVERY 1 CYCLE
     Route: 042
     Dates: start: 20250806
  3. ATOVAQUONE [Suspect]
     Active Substance: ATOVAQUONE
     Indication: Opportunistic infection prophylaxis
     Dosage: 750 MILLIGRAM, EVERY 12 HOURS
     Route: 048
     Dates: start: 20250723, end: 20250906
  4. PREDNISONE [Concomitant]
     Active Substance: PREDNISONE
  5. URAPIDIL [Concomitant]
     Active Substance: URAPIDIL
  6. MICARDIS [Concomitant]
     Active Substance: TELMISARTAN

REACTIONS (1)
  - Bicytopenia [Recovered/Resolved]

NARRATIVE: CASE EVENT DATE: 20250905
